FAERS Safety Report 21113549 (Version 1)
Quarter: 2022Q3

REPORT INFORMATION
  Report Type: Spontaneous
  Country: US (occurrence: None)
  Receive Date: 20220721
  Receipt Date: 20220721
  Transmission Date: 20221027
  Serious: Yes (unspecified)
  Sender: FDA-Public Use
  Company Number: None

PATIENT
  Age: 78 Year
  Sex: Male
  Weight: 70 kg

DRUGS (2)
  1. PAXLOVID [Suspect]
     Active Substance: NIRMATRELVIR\RITONAVIR
     Indication: COVID-19
     Dosage: FREQUENCY : TWICE A DAY;?
     Route: 048
     Dates: start: 20220617, end: 20220623
  2. TACROLIMUS [Suspect]
     Active Substance: TACROLIMUS
     Indication: Heart transplant
     Dosage: FREQUENCY : DAILY;?
     Route: 048

REACTIONS (8)
  - Fatigue [None]
  - Productive cough [None]
  - Dyspnoea exertional [None]
  - Dizziness [None]
  - Night sweats [None]
  - Myalgia [None]
  - Dysgeusia [None]
  - Drug level increased [None]

NARRATIVE: CASE EVENT DATE: 20220617
